FAERS Safety Report 4362337-4 (Version None)
Quarter: 2004Q2

REPORT INFORMATION
  Report Type: 
  Country: None (occurrence: None)
  Receive Date: 20040520
  Receipt Date: 20040520
  Transmission Date: 20050107
  Serious: Yes (Hospitalization)
  Sender: FDA-Public Use
  Company Number: None

PATIENT
  Sex: Male

DRUGS (14)
  1. SIMVASTATIN [Suspect]
     Indication: BLOOD CHOLESTEROL INCREASED
     Dosage: 40 MG QD-SEVERAL YEARS
  2. SIMVASTATIN [Suspect]
     Indication: CORONARY ARTERY DISEASE
     Dosage: 40 MG QD-SEVERAL YEARS
  3. GEMFIBROZIL [Suspect]
     Dosage: 300 MG BID
  4. ALBUTEROL [Concomitant]
  5. DILTIAZEM [Concomitant]
  6. FUROSEMIDE [Concomitant]
  7. GABAPENTIN [Concomitant]
  8. .. [Concomitant]
  9. NPH AND REG INSULIN [Concomitant]
  10. LISINOPRIL [Concomitant]
  11. METOPROLOL TARTRATE [Concomitant]
  12. NIASPAN [Concomitant]
  13. NITROGLYCERIN [Concomitant]
  14. SERTRALINE [Concomitant]

REACTIONS (5)
  - BLOOD CREATINE PHOSPHOKINASE INCREASED [None]
  - BLOOD CREATININE INCREASED [None]
  - MUSCLE CRAMP [None]
  - PAIN [None]
  - RHABDOMYOLYSIS [None]
